FAERS Safety Report 5531042-0 (Version None)
Quarter: 2007Q4

REPORT INFORMATION
  Report Type: 
  Country: None (occurrence: None)
  Receive Date: 20071130
  Receipt Date: 20071121
  Transmission Date: 20080405
  Serious: Yes (Other)
  Sender: FDA-Public Use
  Company Number: FR-ABBOTT-07P-056-0425641-00

PATIENT
  Sex: Male
  Weight: 80 kg

DRUGS (6)
  1. DEPAKENE [Suspect]
     Indication: DRUG USE FOR UNKNOWN INDICATION
     Route: 048
     Dates: end: 20071108
  2. DEPAKENE [Suspect]
  3. DEPAKENE [Suspect]
  4. DEPAKENE [Suspect]
     Indication: DRUG USE FOR UNKNOWN INDICATION
     Route: 042
     Dates: start: 20071109
  5. DEPAKENE [Suspect]
     Route: 042
     Dates: start: 20071101
  6. OXCARBAZEPINE [Concomitant]
     Indication: DRUG USE FOR UNKNOWN INDICATION
     Route: 048

REACTIONS (2)
  - EPILEPSY [None]
  - SOMNOLENCE [None]
